FAERS Safety Report 12568853 (Version 1)
Quarter: 2016Q3

REPORT INFORMATION
  Report Type: Report from Study
  Country: AT (occurrence: AT)
  Receive Date: 20160719
  Receipt Date: 20160719
  Transmission Date: 20161109
  Serious: Yes (Other)
  Sender: FDA-Public Use
  Company Number: AT-VELOXIS PHARMACEUTICALS-1055226

PATIENT
  Age: 61 Year
  Sex: Male
  Weight: 75.82 kg

DRUGS (13)
  1. HUMALOG [Concomitant]
     Active Substance: INSULIN LISPRO
     Dates: start: 20160204
  2. PANTOLOC [Concomitant]
     Active Substance: PANTOPRAZOLE SODIUM
     Dates: start: 20150113
  3. APREDNISLON [Concomitant]
     Active Substance: PREDNISOLONE
  4. CIPRALEX [Concomitant]
     Active Substance: ESCITALOPRAM OXALATE
     Dates: start: 20151114
  5. CONCOR [Concomitant]
     Active Substance: BISOPROLOL FUMARATE
     Dates: start: 20150113
  6. MYFENAX [Concomitant]
     Active Substance: MYCOPHENOLATE MOFETIL
  7. AMLODIPIN [Concomitant]
     Active Substance: AMLODIPINE BESYLATE
     Dates: start: 20160204
  8. EUSAPRIM [Concomitant]
     Dates: start: 20160204
  9. ENVARSUS XR [Suspect]
     Active Substance: TACROLIMUS
     Indication: IMMUNOSUPPRESSANT DRUG THERAPY
     Route: 048
     Dates: start: 20160209, end: 20160420
  10. AEROMUC [Concomitant]
     Dates: start: 20160121
  11. LOVENOX [Concomitant]
     Active Substance: ENOXAPARIN SODIUM
     Dates: start: 20160204
  12. HUMALOG [Concomitant]
     Active Substance: INSULIN LISPRO
     Dates: start: 20160204
  13. THROMBO ASS [Concomitant]
     Active Substance: ASPIRIN
     Dates: start: 20150113

REACTIONS (1)
  - Circulatory collapse [Recovered/Resolved]

NARRATIVE: CASE EVENT DATE: 20160414
